FAERS Safety Report 5262933-6 (Version None)
Quarter: 2007Q1

REPORT INFORMATION
  Report Type: 
  Country: None (occurrence: None)
  Receive Date: 20070312
  Receipt Date: 20070305
  Transmission Date: 20070707
  Serious: Yes (Hospitalization)
  Sender: FDA-Public Use
  Company Number: US-JNJFOC-20070301664

PATIENT
  Sex: Female
  Weight: 70.31 kg

DRUGS (5)
  1. FENTANYL TRANSDERMAL SYSTEM [Suspect]
     Indication: PAIN
     Route: 062
  2. DURAGESIC-100 [Suspect]
     Indication: PAIN
     Route: 062
  3. CODEINE [Concomitant]
     Indication: PAIN
  4. XANAX [Concomitant]
     Indication: ANXIETY
  5. PEGASYS [Concomitant]
     Indication: HEPATITIS C

REACTIONS (12)
  - ASTHENIA [None]
  - DIZZINESS [None]
  - DRUG WITHDRAWAL SYNDROME [None]
  - DRY MOUTH [None]
  - HEART RATE INCREASED [None]
  - HOSPITALISATION [None]
  - HYPERSOMNIA [None]
  - MALAISE [None]
  - MEMORY IMPAIRMENT [None]
  - NERVOUSNESS [None]
  - UNEVALUABLE EVENT [None]
  - WEIGHT INCREASED [None]
